FAERS Safety Report 11087839 (Version 4)
Quarter: 2016Q1

REPORT INFORMATION
  Report Type: Report from Study
  Country: US (occurrence: US)
  Receive Date: 20150504
  Receipt Date: 20160205
  Transmission Date: 20160525
  Serious: Yes (Other)
  Sender: FDA-Public Use
  Company Number: US-LEO PHARMA-234052

PATIENT
  Age: 57 Year
  Sex: Male

DRUGS (2)
  1. DAIVOBET [Suspect]
     Active Substance: BETAMETHASONE DIPROPIONATE\CALCIPOTRIENE
     Indication: PSORIASIS
  2. SARNA [Suspect]
     Active Substance: CAMPHOR (NATURAL)\MENTHOL\PRAMOXINE HYDROCHLORIDE
     Indication: PRURITUS

REACTIONS (4)
  - Peripheral swelling [Recovered/Resolved]
  - Blister [Recovered/Resolved]
  - Skin infection [Recovered/Resolved]
  - Wound [Recovered/Resolved]
